FAERS Safety Report 14673700 (Version 2)
Quarter: 2018Q2

REPORT INFORMATION
  Report Type: Spontaneous
  Country: US (occurrence: US)
  Receive Date: 20180323
  Receipt Date: 20180426
  Transmission Date: 20180711
  Serious: Yes (Other)
  Sender: FDA-Public Use
  Company Number: US-ASTRAZENECA-2018SE35033

PATIENT
  Age: 64 Year
  Sex: Male

DRUGS (1)
  1. IMFINZI [Suspect]
     Active Substance: DURVALUMAB
     Indication: NON-SMALL CELL LUNG CANCER
     Route: 042
     Dates: start: 20171202, end: 20180329

REACTIONS (3)
  - Malignant neoplasm progression [Unknown]
  - Weight decreased [Recovering/Resolving]
  - Autoimmune thyroid disorder [Unknown]

NARRATIVE: CASE EVENT DATE: 20180102
